FAERS Safety Report 7259642-0 (Version None)
Quarter: 2011Q1

REPORT INFORMATION
  Report Type: 
  Country: None (occurrence: None)
  Receive Date: 20110130
  Receipt Date: 20100922
  Transmission Date: 20110831
  Serious: No
  Sender: FDA-Public Use
  Company Number: US-ABBOTT-10P-163-0664009-00

PATIENT
  Sex: Female

DRUGS (4)
  1. FLECAINIDE [Concomitant]
     Indication: TACHYCARDIA
  2. BENICAR [Concomitant]
     Indication: HYPERTENSION
  3. HUMIRA [Suspect]
     Indication: PSORIATIC ARTHROPATHY
     Route: 058
     Dates: start: 20090811
  4. SIMVASTATIN [Concomitant]
     Indication: FAMILIAL RISK FACTOR

REACTIONS (2)
  - IMPAIRED HEALING [None]
  - INJECTION SITE PAIN [None]
